FAERS Safety Report 5015146-7 (Version None)
Quarter: 2006Q2

REPORT INFORMATION
  Report Type: 
  Country: None (occurrence: None)
  Receive Date: 20060530
  Receipt Date: 20060517
  Transmission Date: 20061013
  Serious: Yes (Hospitalization, Other)
  Sender: FDA-Public Use
  Company Number: 2006-01078

PATIENT
  Age: 64 Year
  Sex: Male

DRUGS (8)
  1. VELCADE [Suspect]
     Indication: MANTLE CELL LYMPHOMA
     Dosage: SEE IMAGE
     Route: 042
     Dates: start: 20050503
  2. VELCADE [Suspect]
     Indication: MANTLE CELL LYMPHOMA
     Dosage: SEE IMAGE
     Route: 042
     Dates: start: 20050702
  3. NEXIUM [Concomitant]
  4. ALLOPURINOL [Concomitant]
  5. MAGNESIOCARD         (MAGNESIUM ASPARTATE HYDROCHLORIDE) [Concomitant]
  6. BISOPROLOL FUMARATE [Concomitant]
  7. ATORVASTATIN CALCIUM [Concomitant]
  8. VALTREX [Concomitant]

REACTIONS (13)
  - ARRHYTHMIA [None]
  - CONDITION AGGRAVATED [None]
  - DYSGEUSIA [None]
  - HERPES ZOSTER DISSEMINATED [None]
  - HYPOACUSIS [None]
  - HYPOTENSION [None]
  - INSOMNIA [None]
  - NAUSEA [None]
  - POLYNEUROPATHY [None]
  - SYNCOPE [None]
  - TACHYCARDIA [None]
  - THROMBOCYTOPENIA [None]
  - VARICELLA [None]
